FAERS Safety Report 14590630 (Version 1)
Quarter: 2018Q1

REPORT INFORMATION
  Report Type: Report from Study
  Country: CO (occurrence: CO)
  Receive Date: 20180302
  Receipt Date: 20180302
  Transmission Date: 20180509
  Serious: Yes (Hospitalization, Other)
  Sender: FDA-Public Use
  Company Number: CO-ASTELLAS-2018US010160

PATIENT
  Age: 46 Year
  Sex: Male

DRUGS (2)
  1. TACROLIMUS. [Suspect]
     Active Substance: TACROLIMUS
     Indication: RENAL TRANSPLANT
     Route: 048
     Dates: start: 20130801
  2. MYCOPHENOLATE [Concomitant]
     Active Substance: MYCOPHENOLIC ACID
     Indication: RENAL DISORDER
     Route: 048

REACTIONS (5)
  - Pyrexia [Recovered/Resolved]
  - Localised infection [Recovered/Resolved]
  - Inflammation [Recovered/Resolved]
  - Weight decreased [Unknown]
  - Mass [Unknown]

NARRATIVE: CASE EVENT DATE: 20180128
